FAERS Safety Report 4755838-8 (Version None)
Quarter: 2005Q3

REPORT INFORMATION
  Report Type: 
  Country: None (occurrence: None)
  Receive Date: 20050830
  Receipt Date: 20050510
  Transmission Date: 20060218
  Serious: No
  Sender: FDA-Public Use
  Company Number: US-BRISTOL-MYERS SQUIBB COMPANY-12962353

PATIENT
  Age: 65 Year
  Sex: Female
  Weight: 54 kg

DRUGS (10)
  1. ERBITUX [Suspect]
     Indication: COLON CANCER
     Route: 042
     Dates: start: 20050501, end: 20050501
  2. ERBITUX [Suspect]
     Indication: PULMONARY MASS
     Route: 042
     Dates: start: 20050501, end: 20050501
  3. BENADRYL [Concomitant]
     Indication: PREMEDICATION
     Route: 042
     Dates: start: 20050501, end: 20050501
  4. SOLU-MEDROL [Concomitant]
     Indication: PREMEDICATION
     Route: 042
     Dates: start: 20050501, end: 20050501
  5. TYLENOL [Concomitant]
     Indication: PREMEDICATION
     Dates: start: 20050501, end: 20050501
  6. AVASTIN [Concomitant]
  7. CAMPTOSAR [Concomitant]
  8. COUMADIN [Concomitant]
  9. FLUOROURACIL [Concomitant]
  10. LEUCOVORIN [Concomitant]

REACTIONS (2)
  - NEUTROPENIA [None]
  - RASH [None]
